FAERS Safety Report 23093343 (Version 1)
Quarter: 2023Q4

REPORT INFORMATION
  Report Type: Spontaneous
  Country: US (occurrence: US)
  Receive Date: 20231022
  Receipt Date: 20231022
  Transmission Date: 20240110
  Serious: No
  Sender: FDA-Public Use
  Company Number: US-Teikoku Pharma USA-TPU2023-00439

PATIENT
  Weight: 72.186 kg

DRUGS (1)
  1. LIDODERM [Suspect]
     Active Substance: LIDOCAINE
     Indication: Intervertebral disc protrusion
     Route: 061
     Dates: end: 202305

REACTIONS (1)
  - Product dose omission issue [Not Recovered/Not Resolved]
